FAERS Safety Report 16844715 (Version 1)
Quarter: 2019Q3

REPORT INFORMATION
  Report Type: Report from Study
  Country: US (occurrence: US)
  Receive Date: 20190924
  Receipt Date: 20190924
  Transmission Date: 20191005
  Serious: Yes (Hospitalization)
  Sender: FDA-Public Use
  Company Number: US-ROCHE-2408790

PATIENT
  Age: 74 Year
  Sex: Female

DRUGS (16)
  1. RITUXIMAB. [Suspect]
     Active Substance: RITUXIMAB
     Indication: ACUTE LYMPHOCYTIC LEUKAEMIA
     Dosage: ON DAY 2 AND DAY 8 OF CYCLES 1 AND 3.
     Route: 042
  2. INOTUZUMAB OZOGAMICIN [Suspect]
     Active Substance: INOTUZUMAB OZOGAMICIN
     Indication: ACUTE LYMPHOCYTIC LEUKAEMIA
     Dosage: OVER 1 HOUR ON DAYS 2 AND 8 OF CYCLES 1 AND 3 (APPROXIMATE)
     Route: 042
     Dates: start: 20190131
  3. INOTUZUMAB OZOGAMICIN [Suspect]
     Active Substance: INOTUZUMAB OZOGAMICIN
     Dosage: ON DAYS 2 AND 8 OF CYCLES 2 AND 4 (APPROXIMATE).
     Route: 042
  4. PEGFILGRASTIM [Suspect]
     Active Substance: PEGFILGRASTIM
     Indication: ACUTE LYMPHOCYTIC LEUKAEMIA
     Dosage: OR FILGRASTIM 5-10 MCG/KG DAILY) ON DAY 4.
     Route: 058
  5. METHOTREXATE SODIUM. [Suspect]
     Active Substance: METHOTREXATE SODIUM
     Indication: ACUTE LYMPHOCYTIC LEUKAEMIA
     Dosage: OVER 2HRS ON DAY 1 THEN, REGIMEN B: CYCLES 2, 4, 8, 10
     Route: 042
  6. PEGFILGRASTIM [Suspect]
     Active Substance: PEGFILGRASTIM
     Dosage: 5-10 MCG/KG DAILY
     Route: 058
  7. RITUXIMAB. [Suspect]
     Active Substance: RITUXIMAB
     Dosage: ON DAY 2 AND 8 OF CYCLES 2 AND 4.
     Route: 042
  8. MESNA. [Suspect]
     Active Substance: MESNA
     Indication: ACUTE LYMPHOCYTIC LEUKAEMIA
     Dosage: DAILY OVER 24 HOURS FOR 3 DAYS ON DAYS 1-3, REGIMEN A: CYCLES 1, 3, 7, 9.
     Route: 042
  9. BLINATUMOMAB [Suspect]
     Active Substance: BLINATUMOMAB
     Indication: ACUTE LYMPHOCYTIC LEUKAEMIA
     Dosage: PER DAY CONTINUOUS IV DAYS 1-4 (CYCLE 5 ONLY).
     Route: 042
  10. BLINATUMOMAB [Suspect]
     Active Substance: BLINATUMOMAB
     Dosage: PER DAY, CONTINUOUS IV DAYS 4-29 (CYCLE 5 ONLY).
     Route: 042
  11. VINCRISTINE SULFATE. [Suspect]
     Active Substance: VINCRISTINE SULFATE
     Indication: ACUTE LYMPHOCYTIC LEUKAEMIA
     Dosage: DAY 1 AND DAY 8 (APPROXIMATE), REGIMEN A: CYCLES 1, 3, 7, 9.
     Route: 042
  12. CYTARABINE. [Suspect]
     Active Substance: CYTARABINE
     Indication: ACUTE LYMPHOCYTIC LEUKAEMIA
     Dosage: OVER 3 HOURS TWICE A DAY X 4 DOSES ON DAYS 2 AND 3, REGIMEN B: CYCLES 2, 4, 8, 10
     Route: 042
  13. DEXAMETHASONE. [Suspect]
     Active Substance: DEXAMETHASONE
     Indication: ACUTE LYMPHOCYTIC LEUKAEMIA
     Dosage: DAILY FOR 4 DAYS ON DAYS 1-4 AND DAYS 11-14 (APPROXIMATE), REGIMEN A: CYCLES 1, 3, 7,9.
     Route: 042
  14. BLINATUMOMAB [Suspect]
     Active Substance: BLINATUMOMAB
     Dosage: DAYS 1-29 (CYCLES 6, 11 AND 12).
     Route: 042
  15. METHOTREXATE SODIUM. [Suspect]
     Active Substance: METHOTREXATE SODIUM
     Dosage: INFUSION OVER 22 HOURS ON DAY 1,REGIMEN B: CYCLES 2, 4, 8, 10
     Route: 042
  16. CYCLOPHOSPHAMIDE. [Suspect]
     Active Substance: CYCLOPHOSPHAMIDE
     Indication: ACUTE LYMPHOCYTIC LEUKAEMIA
     Dosage: OVER 3 HOURS TWICE A DAY ON DAYS 1-3, REGIMEN A: CYCLES 1, 3, 7, 9
     Route: 042

REACTIONS (1)
  - Mental status changes [Recovered/Resolved]

NARRATIVE: CASE EVENT DATE: 20190713
